FAERS Safety Report 4898890-1 (Version None)
Quarter: 2006Q1

REPORT INFORMATION
  Report Type: 
  Country: None (occurrence: None)
  Receive Date: 20060106
  Receipt Date: 20050802
  Transmission Date: 20060701
  Serious: No
  Sender: FDA-Public Use
  Company Number: 200511373BWH

PATIENT
  Age: 83 Year
  Sex: Male

DRUGS (4)
  1. LEVITRA [Suspect]
     Dosage: 20 MG, PRN, ORAL
     Route: 048
     Dates: start: 20050629
  2. METOPROLOL [Concomitant]
  3. FOLIC ACID [Concomitant]
  4. CHONDROITIN [Concomitant]

REACTIONS (1)
  - DRUG INEFFECTIVE [None]
